FAERS Safety Report 10348638 (Version 1)
Quarter: 2014Q3

REPORT INFORMATION
  Report Type: Spontaneous
  Country: JP (occurrence: JP)
  Receive Date: 20140729
  Receipt Date: 20140729
  Transmission Date: 20150326
  Serious: Yes (Congenital Anomaly)
  Sender: FDA-Public Use
  Company Number: JP-ELI_LILLY_AND_COMPANY-JP201407007019

PATIENT
  Age: 0 Day
  Weight: 3.5 kg

DRUGS (1)
  1. HUMALOG [Suspect]
     Active Substance: INSULIN LISPRO
     Indication: TYPE 1 DIABETES MELLITUS
     Dosage: UNK
     Route: 058
     Dates: start: 20100413

REACTIONS (4)
  - Exposure during breast feeding [Unknown]
  - Cleft lip [Unknown]
  - Foetal exposure during pregnancy [Recovered/Resolved]
  - Apgar score low [Unknown]

NARRATIVE: CASE EVENT DATE: 20130917
